FAERS Safety Report 8268410-2 (Version None)
Quarter: 2012Q2

REPORT INFORMATION
  Report Type: 
  Country: None (occurrence: None)
  Receive Date: 20120409
  Receipt Date: 20120403
  Transmission Date: 20120825
  Serious: No
  Sender: FDA-Public Use
  Company Number: US-PFIZER INC-2012084871

PATIENT
  Sex: Female
  Weight: 40.816 kg

DRUGS (3)
  1. AZITHROMYCIN [Suspect]
     Indication: SINUS DISORDER
  2. AZITHROMYCIN [Suspect]
     Indication: BRONCHITIS
  3. AZITHROMYCIN [Suspect]
     Indication: PNEUMONIA
     Dosage: 1200 MG, UNK
     Route: 048
     Dates: start: 20090101

REACTIONS (1)
  - DIARRHOEA [None]
